FAERS Safety Report 4275518-5 (Version None)
Quarter: 2004Q1

REPORT INFORMATION
  Report Type: 
  Country: None (occurrence: None)
  Receive Date: 20040121
  Receipt Date: 20031226
  Transmission Date: 20041129
  Serious: Yes (Hospitalization, Other)
  Sender: FDA-Public Use
  Company Number: JP-GLAXOSMITHKLINE-B0318585A

PATIENT
  Age: 68 Year
  Sex: Female

DRUGS (10)
  1. ZOVIRAX [Suspect]
     Indication: HERPES ZOSTER
     Route: 048
     Dates: start: 20031221, end: 20031223
  2. ZOVIRAX [Suspect]
     Dosage: 125MG PER DAY
     Route: 042
     Dates: start: 20031224
  3. PRAVASTATIN SODIUM [Concomitant]
     Dosage: 10MG PER DAY
     Route: 048
  4. LEVOTHYROXINE SODIUM [Concomitant]
     Dosage: 50MG PER DAY
     Route: 048
  5. CALCITRIOL [Concomitant]
     Dosage: .3MCG PER DAY
     Route: 048
  6. PRECIPITATED CALCIUM CARBONATE [Concomitant]
     Dosage: 1G PER DAY
     Route: 048
  7. TROXIPIDE [Concomitant]
     Dosage: 200MG PER DAY
     Route: 048
  8. PANTETHINE [Concomitant]
     Dosage: 1G PER DAY
     Route: 048
  9. MAGNESIUM OXIDE [Concomitant]
     Dosage: 1G PER DAY
     Route: 048
  10. LAFUTIDINE [Concomitant]
     Dosage: 10MG PER DAY
     Route: 048

REACTIONS (2)
  - DYSLALIA [None]
  - SPEECH DISORDER [None]
